FAERS Safety Report 17702589 (Version 2)
Quarter: 2020Q2

REPORT INFORMATION
  Report Type: Spontaneous
  Country: US (occurrence: US)
  Receive Date: 20200424
  Receipt Date: 20200522
  Transmission Date: 20200714
  Serious: No
  Sender: FDA-Public Use
  Company Number: US-GLAXOSMITHKLINE-US2020AMR069656

PATIENT
  Age: 26 Year
  Sex: Female
  Weight: 67.1 kg

DRUGS (2)
  1. NUCALA [Suspect]
     Active Substance: MEPOLIZUMAB
     Indication: PULMONARY EOSINOPHILIA
     Dosage: 100 MG, CYC
     Route: 058
     Dates: start: 20200403
  2. NUCALA [Suspect]
     Active Substance: MEPOLIZUMAB
     Dosage: 100 MG, CYC
     Route: 058

REACTIONS (4)
  - Mobility decreased [Unknown]
  - Dizziness [Recovering/Resolving]
  - Quarantine [Unknown]
  - Back pain [Unknown]

NARRATIVE: CASE EVENT DATE: 202004
